FAERS Safety Report 25143911 (Version 1)
Quarter: 2025Q2

REPORT INFORMATION
  Report Type: Spontaneous
  Country: CO (occurrence: CO)
  Receive Date: 20250401
  Receipt Date: 20250401
  Transmission Date: 20250716
  Serious: No
  Sender: EPIC PHARM
  Company Number: CO-EPICPHARMA-CO-2025EPCLIT00327

PATIENT
  Age: 31 Year
  Sex: Female

DRUGS (5)
  1. MOXIFLOXACIN HYDROCHLORIDE [Suspect]
     Active Substance: MOXIFLOXACIN HYDROCHLORIDE
     Indication: Antibiotic prophylaxis
     Route: 048
  2. FLUOROMETHOLONE [Concomitant]
     Active Substance: FLUOROMETHOLONE
     Route: 061
  3. BRIMONIDINE [Concomitant]
     Active Substance: BRIMONIDINE TARTRATE
     Route: 065
  4. DORZOLAMIDE [Concomitant]
     Active Substance: DORZOLAMIDE
     Route: 065
  5. TIMOLOL [Concomitant]
     Active Substance: TIMOLOL
     Route: 065

REACTIONS (1)
  - Iris transillumination defect [Recovering/Resolving]
